FAERS Safety Report 24012612 (Version 1)
Quarter: 2024Q2

REPORT INFORMATION
  Report Type: Spontaneous
  Country: TR (occurrence: TR)
  Receive Date: 20240626
  Receipt Date: 20240626
  Transmission Date: 20240716
  Serious: Yes (Other)
  Sender: FDA-Public Use
  Company Number: TR-STERISCIENCE B.V.-2024-ST-000855

PATIENT

DRUGS (2)
  1. AMPICILLIN AND SULBACTAM [Suspect]
     Active Substance: AMPICILLIN SODIUM\SULBACTAM SODIUM
     Indication: Infection
     Dosage: IV ANTIBIOTIC THERAPY
     Route: 042
  2. CLINDAMYCIN [Suspect]
     Active Substance: CLINDAMYCIN
     Indication: Infection
     Dosage: IV ANTIBIOTIC THERAPY
     Route: 042

REACTIONS (1)
  - Drug reaction with eosinophilia and systemic symptoms [None]
